FAERS Safety Report 25324267 (Version 1)
Quarter: 2025Q2

REPORT INFORMATION
  Report Type: Spontaneous
  Country: CN (occurrence: CN)
  Receive Date: 20250516
  Receipt Date: 20250516
  Transmission Date: 20250717
  Serious: Yes (Hospitalization)
  Sender: MYLAN
  Company Number: CN-MYLANLABS-2025M1040727

PATIENT
  Age: 74 Year
  Sex: Male
  Weight: 56 kg

DRUGS (4)
  1. LIPITOR [Suspect]
     Active Substance: ATORVASTATIN CALCIUM
     Indication: Cerebral infarction
     Dosage: 20 MILLIGRAM, PM (EVERY NIGHT)
     Dates: start: 20250501
  2. LIPITOR [Suspect]
     Active Substance: ATORVASTATIN CALCIUM
     Indication: Cerebral artery thrombosis
  3. OXIRACETAM [Concomitant]
     Active Substance: OXIRACETAM
     Indication: Cerebral infarction
     Dosage: 4 GRAM, QD
     Dates: start: 20250501, end: 20250508
  4. OXIRACETAM [Concomitant]
     Active Substance: OXIRACETAM
     Indication: Cerebral artery thrombosis

REACTIONS (2)
  - Hepatic enzyme increased [Not Recovered/Not Resolved]
  - Off label use [Unknown]

NARRATIVE: CASE EVENT DATE: 20250501
